FAERS Safety Report 4301869-1 (Version None)
Quarter: 2004Q1

REPORT INFORMATION
  Report Type: 
  Country: None (occurrence: None)
  Receive Date: 20040223
  Receipt Date: 20031006
  Transmission Date: 20041129
  Serious: Yes (Hospitalization)
  Sender: FDA-Public Use
  Company Number: WAES 0310USA00948

PATIENT
  Age: 82 Year
  Sex: Male
  Weight: 79 kg

DRUGS (3)
  1. [THERAPY UNSPECIFIED] [Concomitant]
  2. ZETIA [Suspect]
     Indication: HYPERLIPIDAEMIA
     Route: 048
  3. ZETIA [Suspect]
     Route: 048

REACTIONS (3)
  - BILE DUCT STONE [None]
  - PANCREATIC CARCINOMA [None]
  - PANCREATITIS [None]
